FAERS Safety Report 4277353-0 (Version None)
Quarter: 2004Q1

REPORT INFORMATION
  Report Type: 
  Country: None (occurrence: None)
  Receive Date: 20040122
  Receipt Date: 20040119
  Transmission Date: 20041129
  Serious: Yes (Other)
  Sender: FDA-Public Use
  Company Number: PHBS2004FI00946

PATIENT
  Age: 58 None
  Sex: Male

DRUGS (8)
  1. TRILEPTAL [Suspect]
     Indication: EPILEPSY
     Route: 048
     Dates: start: 20031021, end: 20031126
  2. LIPITOR [Concomitant]
     Indication: HYPERCHOLESTEROLAEMIA
     Route: 048
     Dates: start: 20031213
  3. CARDACE [Concomitant]
     Indication: HYPERTENSION
     Route: 048
     Dates: start: 20030303
  4. RISPERDAL [Concomitant]
     Indication: RESTLESSNESS
     Route: 048
     Dates: start: 20030225
  5. PROFAMID [Concomitant]
     Indication: PROSTATE CANCER
     Route: 048
     Dates: start: 20031009, end: 20031201
  6. LEUPROLIDE ACETATE [Concomitant]
     Indication: PROSTATE CANCER
     Dosage: 1 INJECTION EVERY 3 MONTHS
  7. MAREVAN [Concomitant]
     Indication: HAEMODILUTION
     Route: 048
     Dates: start: 20030225
  8. DEPRAKINE [Concomitant]
     Indication: EPILEPSY
     Route: 048
     Dates: start: 20031222

REACTIONS (1)
  - HEPATITIS [None]
